FAERS Safety Report 7053567-1 (Version None)
Quarter: 2010Q4

REPORT INFORMATION
  Report Type: 
  Country: None (occurrence: None)
  Receive Date: 20101020
  Receipt Date: 20101011
  Transmission Date: 20110411
  Serious: Yes (Hospitalization)
  Sender: FDA-Public Use
  Company Number: US-ROCHE-696581

PATIENT
  Sex: Male

DRUGS (3)
  1. BEVACIZUMAB [Suspect]
     Dosage: 830 MG, QOW
     Route: 042
     Dates: start: 20100210
  2. RO 5398760 (ANTI-NRP1) [Suspect]
     Dosage: 996 MG, QOW
     Route: 042
     Dates: start: 20100210
  3. PACLITAXEL [Suspect]
     Dosage: 177 MG, 1/WEEK
     Route: 042
     Dates: start: 20100210

REACTIONS (1)
  - BACTERAEMIA [None]
